FAERS Safety Report 24529183 (Version 1)
Quarter: 2024Q4

REPORT INFORMATION
  Report Type: Spontaneous
  Country: JP (occurrence: JP)
  Receive Date: 20241021
  Receipt Date: 20241021
  Transmission Date: 20250114
  Serious: Yes (Other)
  Sender: ALEXION PHARMACEUTICALS
  Company Number: JP-ASTRAZENECA-240101222_012620_P_1

PATIENT
  Age: 62 Year

DRUGS (8)
  1. TRUQAP [Suspect]
     Active Substance: CAPIVASERTIB
     Indication: Breast cancer
     Dosage: NUMBER OF SEPARATE DOSAGES UNKNOWN, 4-DAYS-ON TREATMENT FOLLOWED BY 3-DAYS-OFF TREATMENT.
  2. FASLODEX [Suspect]
     Active Substance: FULVESTRANT
     Indication: Breast cancer
  3. FASLODEX [Suspect]
     Active Substance: FULVESTRANT
  4. DENOSUMAB [Concomitant]
     Active Substance: DENOSUMAB
     Dosage: DOSE UNKNOWN
     Route: 065
  5. DENOSUMAB [Concomitant]
     Active Substance: DENOSUMAB
     Dosage: DOSE UNKNOWN
     Route: 065
  6. VIMPAT [Concomitant]
     Active Substance: LACOSAMIDE
     Dosage: DOSE UNKNOWN
     Route: 065
  7. LANSOPRAZOLE [Concomitant]
     Active Substance: LANSOPRAZOLE
     Dosage: DOSE UNKNOWN
     Route: 065
  8. LANSOPRAZOLE [Concomitant]
     Active Substance: LANSOPRAZOLE
     Dosage: DOSE UNKNOWN
     Route: 065

REACTIONS (2)
  - Epilepsy [Recovered/Resolved]
  - Drug eruption [Recovering/Resolving]
